FAERS Safety Report 18510091 (Version 1)
Quarter: 2020Q4

REPORT INFORMATION
  Report Type: Spontaneous
  Country: US (occurrence: US)
  Receive Date: 20201114
  Receipt Date: 20201114
  Transmission Date: 20210114
  Serious: Yes (Hospitalization)
  Sender: FDA-Public Use
  Company Number: None

PATIENT
  Sex: Male
  Weight: 129.9 kg

DRUGS (7)
  1. CYCLOPHOSPHAMIDE. [Concomitant]
     Active Substance: CYCLOPHOSPHAMIDE
  2. MERCAPTOPURINE. [Concomitant]
     Active Substance: MERCAPTOPURINE
  3. GLEEVEC [Concomitant]
     Active Substance: IMATINIB MESYLATE
  4. CISPLATIN (119875) [Suspect]
     Active Substance: CISPLATIN
  5. CYTARABINE. [Concomitant]
     Active Substance: CYTARABINE
  6. CYTARABINE. [Concomitant]
     Active Substance: CYTARABINE
  7. METHOTREXATE. [Concomitant]
     Active Substance: METHOTREXATE

REACTIONS (6)
  - Abdominal pain [None]
  - Nausea [None]
  - Pyrexia [None]
  - Enteritis [None]
  - Fatigue [None]
  - Hypophagia [None]

NARRATIVE: CASE EVENT DATE: 20201103
